FAERS Safety Report 11652628 (Version 1)
Quarter: 2015Q4

REPORT INFORMATION
  Report Type: Spontaneous
  Country: FR (occurrence: FR)
  Receive Date: 20151022
  Receipt Date: 20151022
  Transmission Date: 20160304
  Serious: Yes (Hospitalization)
  Sender: FDA-Public Use
  Company Number: FR-PFIZER INC-2015352971

PATIENT
  Age: 64 Year
  Sex: Male

DRUGS (10)
  1. TAZOCILLINE [Suspect]
     Active Substance: PIPERACILLIN SODIUM\TAZOBACTAM SODIUM
     Indication: SEPSIS
     Dosage: 4 G, 2X/DAY
     Route: 042
     Dates: start: 20150822, end: 20150903
  2. AMLODIPINE [Concomitant]
     Active Substance: AMLODIPINE BESYLATE
     Indication: HYPERTENSION
     Dosage: 10 MG, DAILY
  3. AUGMENTIN [Suspect]
     Active Substance: AMOXICILLIN\CLAVULANATE POTASSIUM
     Indication: ENDOCARDITIS
     Dosage: 1 G, 3X/DAY
     Route: 042
     Dates: start: 20150908, end: 20150921
  4. GENTAMICIN. [Suspect]
     Active Substance: GENTAMICIN
     Indication: ENDOCARDITIS
     Dosage: UNK
     Route: 042
     Dates: start: 20150905, end: 20150921
  5. VANCOMYCIN [Concomitant]
     Active Substance: VANCOMYCIN
     Indication: SEPSIS
     Dosage: 1 G, UNK
     Route: 042
     Dates: start: 20150822, end: 20150904
  6. AMIKACINE /00391001/ [Suspect]
     Active Substance: AMIKACIN
     Indication: SEPSIS
     Dosage: UNK
     Route: 042
     Dates: start: 20150822, end: 20150829
  7. RAMIPRIL. [Concomitant]
     Active Substance: RAMIPRIL
     Indication: HYPERTENSION
     Dosage: 2.5 MG, DAILY
  8. BACTRIM F [Concomitant]
     Indication: SEPSIS
     Dosage: 2 DF, WEEKLY
     Dates: start: 20150806, end: 20150831
  9. EUPRESSYL /00631801/ [Concomitant]
     Active Substance: URAPIDIL
     Indication: HYPERTENSION
     Dosage: 60 MG, 2X/DAY
     Dates: start: 20150829
  10. INEXIUM /01479302/ [Concomitant]
     Active Substance: ESOMEPRAZOLE MAGNESIUM
     Indication: ULCER
     Dosage: 40 MG, DAILY
     Dates: start: 20150825

REACTIONS (3)
  - Xerosis [Unknown]
  - Skin exfoliation [Unknown]
  - Dermatitis exfoliative [Unknown]

NARRATIVE: CASE EVENT DATE: 20150918
